FAERS Safety Report 5290387-2 (Version None)
Quarter: 2007Q2

REPORT INFORMATION
  Report Type: 
  Country: None (occurrence: None)
  Receive Date: 20070409
  Receipt Date: 20070330
  Transmission Date: 20071010
  Serious: Yes (Other)
  Sender: FDA-Public Use
  Company Number: CA-BAYER-200711965GDS

PATIENT
  Age: 63 Year

DRUGS (1)
  1. ASPIRIN [Suspect]
     Indication: DRUG USE FOR UNKNOWN INDICATION
     Dosage: TOTAL DAILY DOSE: 2250 MG
     Route: 048

REACTIONS (3)
  - DRUG LEVEL INCREASED [None]
  - MEDICATION ERROR [None]
  - TINNITUS [None]
